FAERS Safety Report 22116442 (Version 2)
Quarter: 2023Q2

REPORT INFORMATION
  Report Type: Spontaneous
  Country: IL (occurrence: IL)
  Receive Date: 20230320
  Receipt Date: 20230410
  Transmission Date: 20230722
  Serious: Yes (Other)
  Sender: FDA-Public Use
  Company Number: IL-PFIZER INC-PV202300050732

PATIENT
  Age: 35 Year
  Sex: Female

DRUGS (3)
  1. LORLATINIB [Suspect]
     Active Substance: LORLATINIB
     Dosage: 75 MG
  2. LORLATINIB [Suspect]
     Active Substance: LORLATINIB
     Dosage: 50 MG
  3. LORLATINIB [Suspect]
     Active Substance: LORLATINIB
     Dosage: 25 MG

REACTIONS (8)
  - Myocardial injury [Unknown]
  - Cardiac dysfunction [Unknown]
  - Headache [Unknown]
  - Dyspnoea [Unknown]
  - Oedema [Unknown]
  - Pain in extremity [Unknown]
  - Blood cholesterol increased [Unknown]
  - Off label use [Unknown]

NARRATIVE: CASE EVENT DATE: 20230314
